FAERS Safety Report 17744708 (Version 4)
Quarter: 2020Q2

REPORT INFORMATION
  Report Type: Spontaneous
  Country: US (occurrence: US)
  Receive Date: 20200505
  Receipt Date: 20200616
  Transmission Date: 20200714
  Serious: Yes (Other)
  Sender: FDA-Public Use
  Company Number: US-PFIZER INC-2020178187

PATIENT
  Age: 46 Year
  Sex: Female

DRUGS (1)
  1. XELJANZ XR [Suspect]
     Active Substance: TOFACITINIB CITRATE
     Indication: RHEUMATOID ARTHRITIS
     Dosage: 11 MG, DAILY
     Route: 048
     Dates: start: 202003, end: 202006

REACTIONS (9)
  - Peripheral swelling [Not Recovered/Not Resolved]
  - Swelling [Unknown]
  - Joint swelling [Not Recovered/Not Resolved]
  - Malaise [Unknown]
  - Dyspnoea [Recovering/Resolving]
  - Swelling face [Not Recovered/Not Resolved]
  - Rheumatoid arthritis [Unknown]
  - Abdominal distension [Not Recovered/Not Resolved]
  - Furuncle [Not Recovered/Not Resolved]

NARRATIVE: CASE EVENT DATE: 20200522
